FAERS Safety Report 9852667 (Version 1)
Quarter: 2014Q1

REPORT INFORMATION
  Report Type: Spontaneous
  Country: US (occurrence: None)
  Receive Date: 20140127
  Receipt Date: 20140127
  Transmission Date: 20141002
  Serious: Yes (Death)
  Sender: FDA-Public Use
  Company Number: UTC-043380

PATIENT
  Age: 77 Year
  Sex: Male
  Weight: 73.18 kg

DRUGS (10)
  1. REMODULIN (10 MILLIGRAM/MILLITERS, INJECTION FOR INFUSION) (TREPROSTINIL SODIUM) [Suspect]
     Indication: PULMONARY ARTERIAL HYPERTENSION
     Dosage: 60.48 UG/KG (0.042 UG/KG, 1 IN 1 MIN), SUBCUTANEOUS
     Route: 058
     Dates: start: 20130315
  2. ADCIRCA (TADALAFILL) [Concomitant]
  3. ALDACTONE (SPIRONOLACTONE) (TONE) [Concomitant]
  4. PRAVACHOL (PRAVASTATIN SODIUM) (UNKNOWN) [Concomitant]
  5. PROTONIX (PANTOPRAZOLE SODIUM) (UNKNOWN) [Concomitant]
  6. FISH OIL (UNKNOWN) [Concomitant]
  7. PLAVIX (CLOPIDOGREL SULFATE) (UNKNOWN) [Concomitant]
  8. ASPIRIN (ACETYLSALICYLIC ACID) (UNKNOWN) (ACETYLSALICYLIC ACID) [Concomitant]
  9. VITAMIN D (ERGOCALCIFEROL) (UNKNOWN) [Concomitant]
  10. LOPERAMIDE (UNKNOWN) [Concomitant]

REACTIONS (1)
  - Death [None]
